FAERS Safety Report 6378394-X (Version None)
Quarter: 2009Q3

REPORT INFORMATION
  Report Type: 
  Country: None (occurrence: None)
  Receive Date: 20090925
  Receipt Date: 20090917
  Transmission Date: 20100115
  Serious: Yes (Other)
  Sender: FDA-Public Use
  Company Number: US-AMGEN-QUU365219

PATIENT
  Sex: Female

DRUGS (2)
  1. ENBREL [Suspect]
     Indication: PSORIATIC ARTHROPATHY
     Route: 058
     Dates: start: 20070403
  2. ENBREL [Suspect]
     Indication: PSORIASIS

REACTIONS (11)
  - CONDITION AGGRAVATED [None]
  - DIPLOPIA [None]
  - DRY EYE [None]
  - GAIT DISTURBANCE [None]
  - HEADACHE [None]
  - HYPERTENSION [None]
  - LACRIMATION INCREASED [None]
  - MUSCULAR WEAKNESS [None]
  - OBESITY [None]
  - OSTEOARTHRITIS [None]
  - RHINORRHOEA [None]
